FAERS Safety Report 9511702 (Version 1)
Quarter: 2013Q3

REPORT INFORMATION
  Report Type: Spontaneous
  Country: US (occurrence: None)
  Receive Date: 20130909
  Receipt Date: 20130909
  Transmission Date: 20140515
  Serious: Yes (Other)
  Sender: FDA-Public Use
  Company Number: None

PATIENT
  Age: 39 Year
  Sex: Female
  Weight: 61.24 kg

DRUGS (3)
  1. AMBIEN CR 12 MG GENERIC [Suspect]
     Indication: INSOMNIA
     Dosage: 12 MG (1 PILL) AS NEEDED TAKEN BY MOUTH
     Route: 048
     Dates: start: 20130906, end: 20130906
  2. AMBIEN CR 12 MG GENERIC [Suspect]
     Indication: NASOPHARYNGITIS
     Dosage: 12 MG (1 PILL) AS NEEDED TAKEN BY MOUTH
     Route: 048
     Dates: start: 20130906, end: 20130906
  3. NYQUIL [Suspect]

REACTIONS (5)
  - Drug interaction [None]
  - Staring [None]
  - Memory impairment [None]
  - Incoherent [None]
  - Loss of consciousness [None]
